FAERS Safety Report 14900819 (Version 1)
Quarter: 2018Q2

REPORT INFORMATION
  Report Type: Spontaneous
  Country: US (occurrence: US)
  Receive Date: 20180428
  Receipt Date: 20180428
  Transmission Date: 20180711
  Serious: Yes (Other)
  Sender: FDA-Public Use
  Company Number: None

PATIENT
  Age: 44 Year
  Sex: Female
  Weight: 83.25 kg

DRUGS (14)
  1. BACLOFEN. [Concomitant]
     Active Substance: BACLOFEN
  2. AMBIEN ER [Concomitant]
  3. BENICAR [Concomitant]
     Active Substance: OLMESARTAN MEDOXOMIL
  4. VALIUM [Concomitant]
     Active Substance: DIAZEPAM
  5. LAMICTAL [Suspect]
     Active Substance: LAMOTRIGINE
     Indication: BIPOLAR DISORDER
     Route: 048
     Dates: start: 20120914, end: 20120917
  6. EFFEXOR [Concomitant]
     Active Substance: VENLAFAXINE HYDROCHLORIDE
  7. PERCOCET [Concomitant]
     Active Substance: ACETAMINOPHEN\OXYCODONE HYDROCHLORIDE
  8. PHENERGAN [Concomitant]
     Active Substance: PROMETHAZINE HYDROCHLORIDE
  9. LIDOCAINE. [Concomitant]
     Active Substance: LIDOCAINE
  10. GABAPENTIN. [Concomitant]
     Active Substance: GABAPENTIN
  11. DICLOFEN [Concomitant]
     Active Substance: DICLOFENAC SODIUM
  12. DIHYDROMORPHONE CR [Concomitant]
  13. TIZANIDINE. [Concomitant]
     Active Substance: TIZANIDINE
  14. KETAMINE [Concomitant]
     Active Substance: KETAMINE

REACTIONS (3)
  - Chemical burn [None]
  - Burning sensation [None]
  - Blister [None]

NARRATIVE: CASE EVENT DATE: 20120917
